FAERS Safety Report 5271207-9 (Version None)
Quarter: 2007Q1

REPORT INFORMATION
  Report Type: 
  Country: None (occurrence: None)
  Receive Date: 20070321
  Receipt Date: 20070314
  Transmission Date: 20070707
  Serious: Yes (Other)
  Sender: FDA-Public Use
  Company Number: US-MERCK-0703USA01287

PATIENT
  Age: 31 Year
  Sex: Female

DRUGS (3)
  1. JANUVIA [Suspect]
     Indication: DIABETES MELLITUS NON-INSULIN-DEPENDENT
     Route: 048
     Dates: start: 20070101, end: 20070213
  2. VITAMINS (UNSPECIFIED) [Concomitant]
     Indication: PRENATAL CARE
     Route: 065
  3. METFORMIN [Concomitant]
     Route: 065
     Dates: end: 20070101

REACTIONS (2)
  - ABORTION SPONTANEOUS [None]
  - DRUG EXPOSURE DURING PREGNANCY [None]
